FAERS Safety Report 8171343-3 (Version None)
Quarter: 2012Q1

REPORT INFORMATION
  Report Type: 
  Country: None (occurrence: None)
  Receive Date: 20120104
  Receipt Date: 20111205
  Transmission Date: 20120608
  Serious: No
  Sender: FDA-Public Use
  Company Number: 2011HGS-002913

PATIENT
  Age: 54 Year
  Sex: Female
  Weight: 83.9154 kg

DRUGS (28)
  1. CELEBREX [Concomitant]
  2. ALLEGRA(FEXOFENADINE HYDROCHLORIDE)(FEXOFENADINE HYDROCHLORIDE) [Concomitant]
  3. OMEGA-3-ACID ETHYL ESTERS (LOVAZA) [Concomitant]
  4. CHOLESTYRAMINE(COLESTYRAMINE)(COLESTYRAMINE) [Concomitant]
  5. BENLYSTA [Suspect]
     Indication: SYSTEMIC LUPUS ERYTHEMATOSUS
     Dosage: 10 MG/KG, 1 IN 28 D, INTRAVENOUS DRIP
     Route: 041
     Dates: start: 20111114
  6. CLONAZEPAM [Concomitant]
  7. CELLCEPT(MYCOPHENOLATE MOFETIL)(MYCOPHENOLATE MOFETIL) [Concomitant]
  8. ACYCLOVIR(ACICLOVIR)(ACICLOVIR) [Concomitant]
  9. PERCOCET(OXYCOCET)(PARACETAMOL, OXYCODONE HYDROCHLORIDE) [Concomitant]
  10. VICODIN(VICODIN)(PARACETAMOL, HYDROCODONE BITARTRATE) [Concomitant]
  11. PREMARIN(ESTROGENS CONJUGATED)(ESTROGENS CONJUGATED) [Concomitant]
  12. FLEXERIL(CYCLOBENZAPRINE HYDROCHLORIDE) (CYCLOBENZAPRINE HYDROCHLORIDE [Concomitant]
  13. VITAMIN E(TOCOPHEROL)(TOCOPHEROL) [Concomitant]
  14. PLAQUENIL(HYDROXYCHLOROQUINE SULFATE)(HYDROXYCHLOROQUINE SULFATE) [Concomitant]
  15. LABETALOL (LABETALOL) (LABETALOL) [Concomitant]
  16. BENADRYL(DIPHENHYDRAMINE HYDROCHLORIDE)(DIPHENHYDRAMINE HYDROCHLORIDE) [Concomitant]
  17. NORVASC [Concomitant]
  18. SEROQUEL(QUETIAPINE FUMARATE) (QUETIAPINE FUMARATE) [Concomitant]
  19. VITAMIN B12(CYANOCOBALAMIN)(CYANOCOBALAMIN) [Concomitant]
  20. NEURONTIN(GABAPENTIN)(GABAPENTI) [Concomitant]
  21. LEXAPRO(ESCITALOPRAM OXALATE)(ESCITALOPRAM OXALATE) [Concomitant]
  22. VITAMIN D(ERGOCALCIFEROL)(ERGOCALCIFEROL) [Concomitant]
  23. ARANESP [Concomitant]
  24. SINGULAIR(MONTELUKAST SODIUM) (MONTELUKAST SODIUM) [Concomitant]
  25. HYDROXYZINE [Concomitant]
  26. MAGNESIUM OXIDE(MAGNESIUM OXIDE)(MAGNESIUM OXIDE [Concomitant]
  27. PREDNISONE [Concomitant]
  28. NASONEX(MOMETASONE FUROATE)(MOMETASONE FUROATE) [Concomitant]

REACTIONS (3)
  - FATIGUE [None]
  - OEDEMA PERIPHERAL [None]
  - WEIGHT INCREASED [None]
